FAERS Safety Report 19037242 (Version 2)
Quarter: 2022Q1

REPORT INFORMATION
  Report Type: Spontaneous
  Country: US (occurrence: US)
  Receive Date: 20210322
  Receipt Date: 20220222
  Transmission Date: 20220424
  Serious: Yes (Other)
  Sender: FDA-Public Use
  Company Number: US-CIPLA LTD.-2021US02061

PATIENT

DRUGS (4)
  1. WARFARIN [Suspect]
     Active Substance: WARFARIN
     Indication: Antiphospholipid syndrome
     Dosage: UNK
     Route: 065
     Dates: start: 201607, end: 201611
  2. WARFARIN [Suspect]
     Active Substance: WARFARIN
     Dosage: UNK
     Route: 065
     Dates: start: 201611, end: 201612
  3. ENOXAPARIN [Suspect]
     Active Substance: ENOXAPARIN
     Indication: Antiphospholipid syndrome
     Dosage: 1 MILLIGRAM/KILOGRAM, BID
     Route: 065
     Dates: start: 201607, end: 201611
  4. ASPIRIN [Suspect]
     Active Substance: ASPIRIN
     Indication: Antiphospholipid syndrome
     Dosage: 81 MG/DAY (LOW DOSE)
     Route: 065
     Dates: start: 201611

REACTIONS (2)
  - Deep vein thrombosis [Recovered/Resolved]
  - Treatment noncompliance [Unknown]

NARRATIVE: CASE EVENT DATE: 20160101
